FAERS Safety Report 14198478 (Version 2)
Quarter: 2018Q1

REPORT INFORMATION
  Report Type: Spontaneous
  Country: US (occurrence: US)
  Receive Date: 20171117
  Receipt Date: 20180103
  Transmission Date: 20180508
  Serious: Yes (Other)
  Sender: FDA-Public Use
  Company Number: US-009507513-1711USA004247

PATIENT
  Age: 70 Year
  Sex: Male

DRUGS (2)
  1. PROSCAR [Suspect]
     Active Substance: FINASTERIDE
     Indication: LOWER URINARY TRACT SYMPTOMS
     Dosage: 5 MG, QD
     Route: 048
  2. TAMSULOSIN HYDROCHLORIDE. [Suspect]
     Active Substance: TAMSULOSIN HYDROCHLORIDE
     Indication: LOWER URINARY TRACT SYMPTOMS
     Dosage: 0.4 MG, QD

REACTIONS (3)
  - Drug ineffective [Unknown]
  - Haematuria [Unknown]
  - Urinary retention [Unknown]
